FAERS Safety Report 8147300-X (Version None)
Quarter: 2012Q1

REPORT INFORMATION
  Report Type: 
  Country: None (occurrence: None)
  Receive Date: 20120218
  Receipt Date: 20110207
  Transmission Date: 20120608
  Serious: No
  Sender: FDA-Public Use
  Company Number: US-ALLERGAN-1101726US

PATIENT
  Age: 37 Year
  Sex: Female

DRUGS (2)
  1. BOTOX COSMETIC [Suspect]
     Indication: SKIN WRINKLING
     Dosage: UNK UNITS
     Route: 030
     Dates: start: 20100929, end: 20100929
  2. BOTOX COSMETIC [Suspect]
     Dosage: 38 UNITS, SINGLE
     Route: 030
     Dates: start: 20110131, end: 20110131

REACTIONS (3)
  - SWELLING [None]
  - PRURITUS [None]
  - MASS [None]
